FAERS Safety Report 19801267 (Version 1)
Quarter: 2021Q3

REPORT INFORMATION
  Report Type: Spontaneous
  Country: DE (occurrence: DE)
  Receive Date: 20210907
  Receipt Date: 20210907
  Transmission Date: 20211014
  Serious: Yes (Hospitalization)
  Sender: FDA-Public Use
  Company Number: NVSC2021DE199547

PATIENT
  Age: 43 Year
  Sex: Male

DRUGS (2)
  1. VIGANTOL [Concomitant]
     Indication: PRODUCT USED FOR UNKNOWN INDICATION
     Dosage: 1000 IU, BID (2?0?0?0)
     Route: 048
  2. FINGOLIMOD. [Suspect]
     Active Substance: FINGOLIMOD
     Indication: PRODUCT USED FOR UNKNOWN INDICATION
     Dosage: 0.5 MG, QD  (1?0?0?0, TABLETTEN)
     Route: 048

REACTIONS (4)
  - Polyuria [Unknown]
  - Pyrexia [Unknown]
  - Dysuria [Unknown]
  - Uhthoff^s phenomenon [Unknown]
